FAERS Safety Report 8837078 (Version 3)
Quarter: 2012Q4

REPORT INFORMATION
  Report Type: 
  Country: US (occurrence: US)
  Receive Date: 20121012
  Receipt Date: 20121123
  Transmission Date: 20130627
  Serious: Yes (Hospitalization, Other)
  Sender: FDA-Public Use
  Company Number: US-BRISTOL-MYERS SQUIBB COMPANY-17016395

PATIENT
  Age: 59 Year
  Sex: Male
  Weight: 107.93 kg

DRUGS (9)
  1. SPRYCEL [Suspect]
     Indication: CHRONIC MYELOID LEUKAEMIA
     Route: 048
     Dates: start: 201111
  2. LOPRESSOR [Concomitant]
  3. ALLOPURINOL [Concomitant]
  4. ASPIRIN [Concomitant]
  5. CRESTOR [Concomitant]
  6. MULTIVITAMIN [Concomitant]
  7. ROPINIROLE [Concomitant]
  8. RISPERDAL [Concomitant]
  9. LISINOPRIL [Concomitant]

REACTIONS (1)
  - Arterial occlusive disease [Recovered/Resolved]
